FAERS Safety Report 24328451 (Version 1)
Quarter: 2024Q3

REPORT INFORMATION
  Report Type: Spontaneous
  Country: GB (occurrence: GB)
  Receive Date: 20240917
  Receipt Date: 20240917
  Transmission Date: 20241017
  Serious: Yes (Hospitalization, Other)
  Sender: TEVA
  Company Number: GB-ZENTIVA-2024-ZT-012757

PATIENT
  Age: 59 Year
  Sex: Male

DRUGS (1)
  1. FINGOLIMOD [Suspect]
     Active Substance: FINGOLIMOD
     Indication: Multiple sclerosis
     Route: 048
     Dates: start: 202308

REACTIONS (2)
  - Lower respiratory tract infection [Unknown]
  - Sepsis [Not Recovered/Not Resolved]
